FAERS Safety Report 4759638-4 (Version None)
Quarter: 2005Q3

REPORT INFORMATION
  Report Type: 
  Country: None (occurrence: None)
  Receive Date: 20050901
  Receipt Date: 20050505
  Transmission Date: 20060218
  Serious: Yes (Death, Hospitalization)
  Sender: FDA-Public Use
  Company Number: US-MERCK-0505USA00771

PATIENT
  Sex: Female
  Weight: 66 kg

DRUGS (16)
  1. VIOXX [Suspect]
     Indication: PAIN IN EXTREMITY
     Route: 048
     Dates: start: 20010604, end: 20030711
  2. NICARDIPINE HYDROCHLORIDE [Concomitant]
     Indication: HYPERTENSION
     Route: 065
     Dates: start: 19960218, end: 20030711
  3. DIPYRIDAMOLE [Concomitant]
     Indication: PERIPHERAL VASCULAR DISORDER
     Route: 065
     Dates: start: 19960218, end: 20030711
  4. PLAVIX [Concomitant]
     Indication: PERIPHERAL VASCULAR DISORDER
     Route: 065
     Dates: start: 19960218, end: 20030711
  5. HYDROCHLOROTHIAZIDE [Concomitant]
     Indication: FLUID RETENTION
     Route: 065
     Dates: start: 19960218, end: 20030711
  6. CLARINEX [Concomitant]
     Indication: HYPERSENSITIVITY
     Route: 065
  7. EXELON [Concomitant]
     Indication: AMNESIA
     Route: 065
  8. ACETAMINOPHEN AND PROPOXYPHENE NAPSYLATE [Concomitant]
     Indication: PAIN
     Route: 065
     Dates: start: 19960218, end: 20030711
  9. PENTOXIFYLLINE [Concomitant]
     Indication: PERIPHERAL VASCULAR DISORDER
     Route: 065
  10. TRIAMTERENE [Concomitant]
     Indication: FLUID RETENTION
     Route: 065
  11. TRIMETHOPRIM AND SULFAMETHOXAZOLE [Concomitant]
     Indication: STAPHYLOCOCCAL INFECTION
     Route: 065
  12. MECLIZINE [Concomitant]
     Indication: NAUSEA
     Route: 065
  13. MECLIZINE [Concomitant]
     Indication: VERTIGO
     Route: 065
  14. DIOVAN [Concomitant]
     Indication: PERIPHERAL VASCULAR DISORDER
     Route: 065
     Dates: start: 19960218, end: 20030711
  15. ULTRACET [Concomitant]
     Indication: PAIN
     Route: 065
     Dates: start: 19960218, end: 20030711
  16. ZOCOR [Concomitant]
     Route: 048
     Dates: start: 19960218, end: 20030711

REACTIONS (6)
  - CEREBROVASCULAR ACCIDENT [None]
  - DEPRESSION [None]
  - EPISTAXIS [None]
  - FALL [None]
  - GOUT [None]
  - TRANSIENT ISCHAEMIC ATTACK [None]
